FAERS Safety Report 7125453-X (Version None)
Quarter: 2010Q4

REPORT INFORMATION
  Report Type: 
  Country: None (occurrence: None)
  Receive Date: 20101129
  Receipt Date: 20091028
  Transmission Date: 20110411
  Serious: No
  Sender: FDA-Public Use
  Company Number: US-MYLANLABS-2009S1018993

PATIENT
  Sex: Female

DRUGS (2)
  1. ALPRAZOLAM [Suspect]
     Indication: ANXIETY
     Route: 048
     Dates: start: 20091027
  2. ALPRAZOLAM [Suspect]
     Indication: TINNITUS
     Route: 048
     Dates: start: 20091027

REACTIONS (3)
  - ANXIETY [None]
  - DRUG INEFFECTIVE [None]
  - DYSGEUSIA [None]
